FAERS Safety Report 6111376-1 (Version None)
Quarter: 2009Q1

REPORT INFORMATION
  Report Type: 
  Country: None (occurrence: None)
  Receive Date: 20090311
  Receipt Date: 20090306
  Transmission Date: 20090719
  Serious: Yes (Hospitalization, Other)
  Sender: FDA-Public Use
  Company Number: B0560670A

PATIENT
  Age: 77 Year
  Sex: Female

DRUGS (3)
  1. VALTREX [Suspect]
     Indication: HERPES VIRUS INFECTION
     Route: 048
     Dates: start: 20070502, end: 20070505
  2. THREENOFEN [Concomitant]
     Indication: OSTEOARTHRITIS
     Dosage: 3U PER DAY
     Route: 048
     Dates: end: 20070502
  3. TROXSIN [Concomitant]
     Dosage: 3U PER DAY
     Route: 048
     Dates: end: 20070502

REACTIONS (3)
  - ANURIA [None]
  - MALAISE [None]
  - RENAL FAILURE [None]
